FAERS Safety Report 4603501-6 (Version None)
Quarter: 2005Q2

REPORT INFORMATION
  Report Type: 
  Country: None (occurrence: None)
  Receive Date: 20050223
  Receipt Date: 20041220
  Transmission Date: 20051028
  Serious: No
  Sender: FDA-Public Use
  Company Number: 211258

PATIENT
  Age: 25 Year
  Sex: Male
  Weight: 117.9 kg

DRUGS (1)
  1. RAPTIVA [Suspect]
     Indication: PSORIASIS
     Dosage: 1.2 ML, 1/WEEK, SUBCUTANEOUS
     Route: 058
     Dates: start: 20041020, end: 20041107

REACTIONS (4)
  - ARTHRALGIA [None]
  - CHEST DISCOMFORT [None]
  - MALAISE [None]
  - URTICARIA [None]
